FAERS Safety Report 17212638 (Version 1)
Quarter: 2019Q4

REPORT INFORMATION
  Report Type: Spontaneous
  Country: SE (occurrence: SE)
  Receive Date: 20191230
  Receipt Date: 20191230
  Transmission Date: 20200122
  Serious: Yes (Hospitalization)
  Sender: FDA-Public Use
  Company Number: SE-TEVA-2019-SE-1158759

PATIENT
  Age: 29 Year

DRUGS (4)
  1. STESOLID [Suspect]
     Active Substance: DIAZEPAM
     Dosage: 44 PCS - 5 MG, 220 MG
     Route: 065
     Dates: start: 20180220, end: 20180220
  2. PROPAVAN [Suspect]
     Active Substance: PROPIOMAZINE
     Dosage: 60 PCS, 1500 MG
     Route: 048
     Dates: start: 20180220, end: 20180220
  3. LYRICA [Suspect]
     Active Substance: PREGABALIN
     Dosage: 22 PCS A 300 MG?44 PCS A 50 MG, 8800 MG
     Route: 065
     Dates: start: 20180220, end: 20180220
  4. CISORDINOL [Suspect]
     Active Substance: ZUCLOPENTHIXOL
     Dosage: 44 PCS A 10 MG, 440 MG
     Route: 065
     Dates: start: 20180220, end: 20180220

REACTIONS (3)
  - Intentional self-injury [Unknown]
  - Intentional overdose [Unknown]
  - Depressed level of consciousness [Unknown]

NARRATIVE: CASE EVENT DATE: 20180220
